FAERS Safety Report 5212619-9 (Version None)
Quarter: 2006Q4

REPORT INFORMATION
  Report Type: 
  Country: None (occurrence: None)
  Receive Date: 20061102
  Receipt Date: 20060426
  Transmission Date: 20070319
  Serious: Yes (Other)
  Sender: FDA-Public Use
  Company Number: 27143

PATIENT
  Age: 24 Year
  Sex: Male
  Weight: 76.2043 kg

DRUGS (3)
  1. METHOTREXATE [Suspect]
     Indication: BURKITT'S LYMPHOMA
     Dosage: 12MG/INTRATHECAL
     Route: 037
     Dates: start: 20050901, end: 20060421
  2. ORALLY ADMINISTERED PRN MEDICATIONS FOR NAUSEA [Concomitant]
  3. ZOFREN [Concomitant]

REACTIONS (1)
  - CONVULSION [None]
